FAERS Safety Report 9160472 (Version 3)
Quarter: 2013Q2

REPORT INFORMATION
  Report Type: Spontaneous
  Country: DK (occurrence: None)
  Receive Date: 20130215
  Receipt Date: 20130522
  Transmission Date: 20140414
  Serious: Yes (Hospitalization, Other)
  Sender: FDA-Public Use
  Company Number: SYM-2013-00477

PATIENT
  Age: 64 Year
  Sex: Female

DRUGS (7)
  1. 5-FU [Suspect]
     Indication: COLORECTAL CANCER METASTATIC
     Route: 040
     Dates: start: 20121130, end: 20121130
  2. AFLIBERCEPT [Suspect]
     Indication: COLORECTAL CANCER METASTATIC
     Route: 041
     Dates: start: 20121214, end: 20121214
  3. IRINOTECAN [Suspect]
     Indication: COLORECTAL CANCER METASTATIC
     Route: 041
     Dates: start: 20121214, end: 20121214
  4. LEUCOVORIN [Suspect]
     Indication: COLORECTAL CANCER METASTATIC
     Route: 041
     Dates: start: 20121214, end: 20121214
  5. LEVOTHYROXINE SODIUM (LEVOTHYROXINE SODIUM) (UNKNOWN) (LEVOTHYROXINE SODIUM) [Concomitant]
  6. ANALGESICS (ANALGESICS) [Concomitant]
  7. MAXALT (RIZATRIPTAN) (RIZATRIPTAN) [Concomitant]

REACTIONS (1)
  - Hypertension [None]
